FAERS Safety Report 11165835 (Version 3)
Quarter: 2015Q3

REPORT INFORMATION
  Report Type: Report from Study
  Country: US (occurrence: US)
  Receive Date: 20150604
  Receipt Date: 20150730
  Transmission Date: 20151125
  Serious: Yes (Hospitalization, Other)
  Sender: FDA-Public Use
  Company Number: US-GILEAD-2015-0154565

PATIENT
  Age: 54 Year
  Sex: Female
  Weight: 63 kg

DRUGS (7)
  1. IDELALISIB [Suspect]
     Active Substance: IDELALISIB
     Dosage: 100 MG, BID
     Route: 048
     Dates: start: 20150516, end: 20150517
  2. RITUXIMAB [Suspect]
     Active Substance: RITUXIMAB
     Indication: NON-HODGKIN^S LYMPHOMA UNSPECIFIED HISTOLOGY INDOLENT
     Dosage: 611 MG, Q1WK
     Route: 042
     Dates: start: 20150224, end: 20150321
  3. RITUXIMAB [Suspect]
     Active Substance: RITUXIMAB
     Dosage: 611 MG, Q1WK
     Route: 042
     Dates: start: 20150514
  4. KLONOPIN [Concomitant]
     Active Substance: CLONAZEPAM
     Indication: ANXIETY
     Dosage: UNK
     Dates: start: 2013
  5. OMEPRAZOLE. [Concomitant]
     Active Substance: OMEPRAZOLE
  6. IDELALISIB [Suspect]
     Active Substance: IDELALISIB
     Dosage: 150 MG, BID
     Route: 048
     Dates: start: 20150420, end: 20150501
  7. IDELALISIB [Suspect]
     Active Substance: IDELALISIB
     Indication: NON-HODGKIN^S LYMPHOMA
     Dosage: 100 MG, BID
     Route: 048
     Dates: start: 20150224, end: 20150327

REACTIONS (16)
  - Pericarditis [Recovered/Resolved]
  - Myalgia [None]
  - Pericardial effusion [None]
  - Headache [None]
  - Liver function test abnormal [None]
  - Chills [None]
  - Dehydration [None]
  - Gastritis [None]
  - Lymphadenopathy [None]
  - Burning sensation [None]
  - Dizziness [None]
  - Mitral valve incompetence [None]
  - Tricuspid valve incompetence [None]
  - Tremor [None]
  - Arthralgia [None]
  - Endocarditis bacterial [None]

NARRATIVE: CASE EVENT DATE: 20150518
